FAERS Safety Report 4994111-X (Version None)
Quarter: 2006Q1

REPORT INFORMATION
  Report Type: 
  Country: None (occurrence: None)
  Receive Date: 20060313
  Receipt Date: 20050601
  Transmission Date: 20060701
  Serious: Yes (Life-Threatening, Hospitalization, Other)
  Sender: FDA-Public Use
  Company Number: PHEH2005US02133

PATIENT
  Age: 12 Year
  Sex: Male

DRUGS (2)
  1. TRILEPTAL [Suspect]
     Indication: AFFECTIVE DISORDER
     Dosage: BID, ORAL
     Route: 048
     Dates: start: 20050124, end: 20050214
  2. ADDERAL (AMFETAMINE ASPARTATE, AMFETAMINE SULFATE, DEXAMFETAMINE SACCH [Concomitant]

REACTIONS (7)
  - BIOPSY SKIN ABNORMAL [None]
  - BLISTER [None]
  - ORAL MUCOSAL BLISTERING [None]
  - PYREXIA [None]
  - RASH GENERALISED [None]
  - STEVENS-JOHNSON SYNDROME [None]
  - STREPTOCOCCAL INFECTION [None]
